FAERS Safety Report 9759376 (Version 1)
Quarter: 2013Q4

REPORT INFORMATION
  Report Type: Spontaneous
  Country: US (occurrence: None)
  Receive Date: 20131216
  Receipt Date: 20131216
  Transmission Date: 20140711
  Serious: Yes (Life-Threatening, Other)
  Sender: FDA-Public Use
  Company Number: 163-21880-12041542(0)

PATIENT
  Age: 79 Year
  Sex: Male

DRUGS (1)
  1. REVLIMID (LENALIDOMIDE) (25 MILLIGRAM, CAPSULES) [Suspect]
     Indication: PLASMA CELL MYELOMA
     Dosage: 25 MG DAILY X 21 DAYS REPEAT EVERY 28 DAYS, PO ?25 MG, DAILY X 21 DAYS, REPEAT EVERY 28 DAYS, PO ?10

REACTIONS (1)
  - Deep vein thrombosis [None]
